FAERS Safety Report 10066223 (Version 3)
Quarter: 2014Q2

REPORT INFORMATION
  Report Type: Report from Study
  Country: CA (occurrence: CA)
  Receive Date: 20140408
  Receipt Date: 20140613
  Transmission Date: 20141212
  Serious: Yes (Other)
  Sender: FDA-Public Use
  Company Number: CA-JNJFOC-20131006120

PATIENT
  Age: 33 Year
  Sex: Female
  Weight: 94 kg

DRUGS (1)
  1. REMICADE [Suspect]
     Indication: COLITIS ULCERATIVE
     Route: 042
     Dates: start: 20110627

REACTIONS (4)
  - Ventricular extrasystoles [Unknown]
  - Exposure during pregnancy [Recovered/Resolved]
  - Colitis ulcerative [Unknown]
  - Road traffic accident [Recovering/Resolving]
